FAERS Safety Report 11234883 (Version 1)
Quarter: 2015Q3

REPORT INFORMATION
  Report Type: Spontaneous
  Country: FR (occurrence: FR)
  Receive Date: 20150702
  Receipt Date: 20150702
  Transmission Date: 20151125
  Serious: Yes (Hospitalization, Other)
  Sender: FDA-Public Use
  Company Number: FR-PFIZER INC-2015219694

PATIENT
  Sex: Female

DRUGS (6)
  1. LASILIX [Suspect]
     Active Substance: FUROSEMIDE
     Dosage: 20 MG, DAILY
     Route: 065
  2. AMIODARONE HCL [Suspect]
     Active Substance: AMIODARONE HYDROCHLORIDE
     Dosage: 200 MG, DAILY
     Route: 048
  3. LEVOTHYROX [Suspect]
     Active Substance: LEVOTHYROXINE
     Dosage: 150 ?G, DAILY
     Route: 048
  4. TEMERIT [Suspect]
     Active Substance: NEBIVOLOL
     Dosage: 1.25 MG, DAILY
     Route: 048
  5. PREVISCAN [Suspect]
     Active Substance: FLUINDIONE
     Dosage: 0.75 DF, DAILY
     Route: 048
     Dates: end: 20150602
  6. PREVISCAN [Suspect]
     Active Substance: FLUINDIONE
     Dosage: 0.5 DF, DAILY
     Route: 048
     Dates: start: 2000

REACTIONS (4)
  - Fall [Unknown]
  - Confusional state [Unknown]
  - Subdural haematoma [Unknown]
  - International normalised ratio increased [Recovered/Resolved]

NARRATIVE: CASE EVENT DATE: 20150602
